FAERS Safety Report 18969452 (Version 2)
Quarter: 2021Q2

REPORT INFORMATION
  Report Type: Spontaneous
  Country: US (occurrence: US)
  Receive Date: 20210304
  Receipt Date: 20210414
  Transmission Date: 20210717
  Serious: Yes (Hospitalization)
  Sender: FDA-Public Use
  Company Number: US-AMRYT PHARMACEUTICALS DAC-AEGR005000

PATIENT
  Sex: Male
  Weight: 90.7 kg

DRUGS (2)
  1. BACTERIOSTATIC WATER [Concomitant]
     Active Substance: WATER
     Indication: PRODUCT USED FOR UNKNOWN INDICATION
  2. MYALEPT [Suspect]
     Active Substance: METRELEPTIN
     Indication: CONGENITAL GENERALISED LIPODYSTROPHY
     Dosage: 2.5 MILLIGRAM, QD
     Route: 058

REACTIONS (5)
  - Product dose omission issue [Unknown]
  - Cervical spinal stenosis [Unknown]
  - Therapy interrupted [Unknown]
  - Rotator cuff syndrome [Unknown]
  - Blood glucose increased [Unknown]
